FAERS Safety Report 6536748-2 (Version None)
Quarter: 2010Q1

REPORT INFORMATION
  Report Type: 
  Country: None (occurrence: None)
  Receive Date: 20100106
  Receipt Date: 20091222
  Transmission Date: 20100710
  Serious: Yes (Death)
  Sender: FDA-Public Use
  Company Number: 2009003899

PATIENT
  Age: 64 Year
  Sex: Male

DRUGS (4)
  1. TARCEVA [Suspect]
     Indication: PANCREATIC CARCINOMA
     Dosage: (QD), ORAL
     Route: 048
     Dates: start: 20081204
  2. OMEPRAZOLE [Concomitant]
  3. PANCREATIN TRIPLE STRENGTH CAP [Concomitant]
  4. INSULIN (INSULIN) [Concomitant]

REACTIONS (8)
  - BLOOD CREATININE INCREASED [None]
  - DYSPNOEA [None]
  - HAEMOGLOBIN DECREASED [None]
  - HAEMORRHAGE [None]
  - HYPOGLYCAEMIA [None]
  - LOSS OF CONSCIOUSNESS [None]
  - PLATELET COUNT DECREASED [None]
  - SEPTIC SHOCK [None]
